FAERS Safety Report 6736232-7 (Version None)
Quarter: 2010Q2

REPORT INFORMATION
  Report Type: 
  Country: None (occurrence: None)
  Receive Date: 20100521
  Receipt Date: 20100512
  Transmission Date: 20101027
  Serious: Yes (Other)
  Sender: FDA-Public Use
  Company Number: IE-SANOFI-AVENTIS-2010SA023584

PATIENT
  Age: 64 Year
  Sex: Female

DRUGS (6)
  1. PLAVIX [Suspect]
     Indication: CORONARY ARTERIAL STENT INSERTION
     Route: 048
     Dates: start: 20100210, end: 20100403
  2. CENTYL K [Concomitant]
     Indication: DRUG USE FOR UNKNOWN INDICATION
  3. DILZEM-RR [Concomitant]
     Indication: DRUG USE FOR UNKNOWN INDICATION
  4. IDEOS [Concomitant]
     Indication: DRUG USE FOR UNKNOWN INDICATION
  5. FORMOTEROL W/BUDESONIDE [Concomitant]
     Indication: DRUG USE FOR UNKNOWN INDICATION
  6. SALBUTAMOL [Concomitant]
     Indication: DRUG USE FOR UNKNOWN INDICATION

REACTIONS (8)
  - ABDOMINAL DISTENSION [None]
  - ARTHRALGIA [None]
  - DECREASED APPETITE [None]
  - HYPERTENSION [None]
  - JOINT SWELLING [None]
  - LETHARGY [None]
  - OEDEMA [None]
  - PYREXIA [None]
